FAERS Safety Report 11636072 (Version 1)
Quarter: 2015Q4

REPORT INFORMATION
  Report Type: Spontaneous
  Country: US (occurrence: US)
  Receive Date: 20151016
  Receipt Date: 20151016
  Transmission Date: 20160304
  Serious: Yes (Death, Hospitalization)
  Sender: FDA-Public Use
  Company Number: US-HORIZON-PRE-0174-2015

PATIENT
  Age: 28 Year
  Sex: Female

DRUGS (2)
  1. PREDNISONE. [Suspect]
     Active Substance: PREDNISONE
     Indication: EXPOSURE TO TOXIC AGENT
  2. CORTISONE CREAM INTENSIVE HEALING [Suspect]
     Active Substance: HYDROCORTISONE
     Indication: EXPOSURE TO TOXIC AGENT

REACTIONS (3)
  - Multi-organ failure [Fatal]
  - Ventricular tachycardia [None]
  - Phaeochromocytoma crisis [Fatal]
